FAERS Safety Report 10563406 (Version 1)
Quarter: 2014Q4

REPORT INFORMATION
  Report Type: Spontaneous
  Country: US (occurrence: US)
  Receive Date: 20141104
  Receipt Date: 20141104
  Transmission Date: 20150529
  Serious: No
  Sender: FDA-Public Use
  Company Number: US-PFIZER INC-2014302832

PATIENT
  Age: 68 Year
  Sex: Male

DRUGS (8)
  1. VIOXX [Suspect]
     Active Substance: ROFECOXIB
     Dosage: UNK
  2. CODEINE [Suspect]
     Active Substance: CODEINE
     Dosage: UNK
  3. REOPRO [Suspect]
     Active Substance: ABCIXIMAB
     Dosage: UNK
  4. CELEBREX [Suspect]
     Active Substance: CELECOXIB
     Dosage: UNK
  5. MECLOMEN [Suspect]
     Active Substance: MECLOFENAMATE SODIUM
     Dosage: UNK
  6. TRAMADOL HCL [Suspect]
     Active Substance: TRAMADOL HYDROCHLORIDE
     Dosage: UNK
  7. ARTHROTEC [Suspect]
     Active Substance: DICLOFENAC SODIUM\MISOPROSTOL
     Dosage: UNK
  8. DOXYCYCLINE MONOHYDRATE [Suspect]
     Active Substance: DOXYCYCLINE
     Dosage: UNK

REACTIONS (1)
  - Drug hypersensitivity [Unknown]
